FAERS Safety Report 7422599-3 (Version None)
Quarter: 2011Q2

REPORT INFORMATION
  Report Type: 
  Country: None (occurrence: None)
  Receive Date: 20110419
  Receipt Date: 20110404
  Transmission Date: 20111010
  Serious: Yes (Hospitalization)
  Sender: FDA-Public Use
  Company Number: US-CELGENEUS-163-21880-11040338

PATIENT
  Sex: Female

DRUGS (3)
  1. REVLIMID [Suspect]
     Indication: MULTIPLE MYELOMA
     Dosage: 15 MILLIGRAM
     Route: 048
     Dates: start: 20090801
  2. REVLIMID [Suspect]
     Dosage: 25 MILLIGRAM
     Route: 048
     Dates: start: 20090901
  3. REVLIMID [Suspect]
     Dosage: 10-25MG
     Route: 048
     Dates: start: 20110201

REACTIONS (4)
  - INTESTINAL OBSTRUCTION [None]
  - HYPOKALAEMIA [None]
  - STAPHYLOCOCCAL INFECTION [None]
  - BACTERAEMIA [None]
